FAERS Safety Report 18689342 (Version 1)
Quarter: 2020Q4

REPORT INFORMATION
  Report Type: Report from Study
  Country: US (occurrence: US)
  Receive Date: 20201231
  Receipt Date: 20201231
  Transmission Date: 20210114
  Serious: Yes (Other)
  Sender: FDA-Public Use
  Company Number: US-JNJFOC-20201241292

PATIENT

DRUGS (1)
  1. PENTOSAN POLYSULFATE SODIUM [Suspect]
     Active Substance: PENTOSAN POLYSULFATE SODIUM
     Indication: CYSTITIS INTERSTITIAL
     Dosage: 100MG-500MG
     Route: 065

REACTIONS (7)
  - Maculopathy [Unknown]
  - Retinal dystrophy [Unknown]
  - Optic disc drusen [Unknown]
  - Retinal pigment epitheliopathy [Unknown]
  - Retinal disorder [Unknown]
  - Stargardt^s disease [Unknown]
  - Cone dystrophy [Unknown]
